FAERS Safety Report 13895085 (Version 1)
Quarter: 2017Q3

REPORT INFORMATION
  Report Type: Spontaneous
  Country: US (occurrence: US)
  Receive Date: 20170817
  Receipt Date: 20170817
  Transmission Date: 20171127
  Serious: Yes (Other)
  Sender: FDA-Public Use
  Company Number: None

PATIENT
  Age: 69 Year
  Sex: Female
  Weight: 63 kg

DRUGS (11)
  1. MULTIVITAMIN [Concomitant]
     Active Substance: VITAMINS
  2. OCUVITE [Concomitant]
     Active Substance: VITAMINS
  3. METOPROLOL. [Concomitant]
     Active Substance: METOPROLOL
  4. ESTER-C WITH CRANBERRY [Concomitant]
  5. SUPREP BOWEL PREP [Suspect]
     Active Substance: MAGNESIUM SULFATE\POTASSIUM SULFATE\SODIUM SULFATE
     Indication: THERAPEUTIC SKIN CARE TOPICAL
     Dosage: QUANTITY:6 OUNCE(S);?
     Route: 048
     Dates: start: 20170816, end: 20170816
  6. CALCIUM WITH D3 [Concomitant]
  7. PROBIOTIC [Concomitant]
     Active Substance: PROBIOTICS NOS
  8. MEGARED [Concomitant]
  9. SUPREP BOWEL PREP [Suspect]
     Active Substance: MAGNESIUM SULFATE\POTASSIUM SULFATE\SODIUM SULFATE
     Indication: COLONOSCOPY
     Dosage: QUANTITY:6 OUNCE(S);?
     Route: 048
     Dates: start: 20170816, end: 20170816
  10. LOSARTAN. [Concomitant]
     Active Substance: LOSARTAN
  11. ASPIRIN. [Concomitant]
     Active Substance: ASPIRIN

REACTIONS (3)
  - Vomiting [None]
  - Discomfort [None]
  - Abdominal pain [None]

NARRATIVE: CASE EVENT DATE: 20170816
